FAERS Safety Report 14851921 (Version 2)
Quarter: 2018Q2

REPORT INFORMATION
  Report Type: Spontaneous
  Country: US (occurrence: US)
  Receive Date: 20180507
  Receipt Date: 20180627
  Transmission Date: 20180711
  Serious: No
  Sender: FDA-Public Use
  Company Number: US-ASTRAZENECA-2018SE50938

PATIENT
  Age: 57 Year
  Sex: Female
  Weight: 36.3 kg

DRUGS (2)
  1. TUDORZA PRESSAIR [Suspect]
     Active Substance: ACLIDINIUM BROMIDE
     Indication: EMPHYSEMA
     Route: 055
     Dates: start: 2013
  2. TUDORZA PRESSAIR [Suspect]
     Active Substance: ACLIDINIUM BROMIDE
     Indication: CHRONIC OBSTRUCTIVE PULMONARY DISEASE
     Route: 055
     Dates: start: 2013

REACTIONS (8)
  - Device malfunction [Unknown]
  - Device failure [Unknown]
  - Weight decreased [Not Recovered/Not Resolved]
  - Flatulence [Not Recovered/Not Resolved]
  - Drug dose omission [Not Recovered/Not Resolved]
  - Emphysema [Unknown]
  - Kyphosis [Unknown]
  - Scoliosis [Unknown]

NARRATIVE: CASE EVENT DATE: 2014
